FAERS Safety Report 9162476 (Version 2)
Quarter: 2013Q1

REPORT INFORMATION
  Report Type: Spontaneous
  Country: VE (occurrence: VE)
  Receive Date: 20130314
  Receipt Date: 20130320
  Transmission Date: 20140127
  Serious: Yes (Death, Other)
  Sender: FDA-Public Use
  Company Number: VE-PFIZER INC-2013085850

PATIENT
  Age: 67 Year
  Sex: Female

DRUGS (1)
  1. LYRICA [Suspect]
     Indication: PAIN
     Dosage: 150 MG, 1X/DAY
     Route: 048
     Dates: start: 2011, end: 2011

REACTIONS (4)
  - Respiratory arrest [Fatal]
  - Hysterotomy [Recovered/Resolved]
  - Intestinal obstruction [Unknown]
  - Faecal vomiting [Unknown]
